FAERS Safety Report 11948564 (Version 1)
Quarter: 2016Q1

REPORT INFORMATION
  Report Type: Spontaneous
  Country: FR (occurrence: FR)
  Receive Date: 20160125
  Receipt Date: 20160125
  Transmission Date: 20160526
  Serious: Yes (Disabling)
  Sender: FDA-Public Use
  Company Number: FR-PFIZER INC-2016013381

PATIENT
  Age: 19 Year
  Sex: Female

DRUGS (13)
  1. METHOTREXATE SODIUM. [Suspect]
     Active Substance: METHOTREXATE SODIUM
     Dosage: 324 MG/M2, WEEKLY(10046 MG/M2 TOTAL)
     Dates: start: 201104, end: 201203
  2. ELDISINE [Suspect]
     Active Substance: VINDESINE SULFATE
     Dosage: 5.4 MG/M2, WEEKLY (5.4 MG/M2 TOTAL)
     Route: 051
     Dates: start: 201104, end: 201203
  3. DAUNORUBICIN [Suspect]
     Active Substance: DAUNORUBICIN
     Dosage: 8.62 MG/M2, WEEKLY (147 MG/M2 TOTAL)
     Route: 051
     Dates: start: 201104, end: 201203
  4. KIDROLASE [Suspect]
     Active Substance: ASPARAGINASE
     Dosage: 7259 IU/M2/WEEK (145180 IU/M2 TOTAL)
     Route: 051
     Dates: start: 201104, end: 201203
  5. ADRIBLASTINE [Suspect]
     Active Substance: DOXORUBICIN
     Dosage: 9 MG/M2, WEEKLY (199 MG/M2 TOTAL),
     Route: 051
     Dates: start: 201104, end: 201203
  6. HOLOXAN [Suspect]
     Active Substance: IFOSFAMIDE
     Dosage: 4054 MG/M2, WEEKLY (4054 MG/M2 TOTAL)
     Route: 051
     Dates: start: 201104, end: 201203
  7. HYDROCORTISONE UPJOHN [Suspect]
     Active Substance: HYDROCORTISONE
     Dosage: 2.46 MG/M2, WEEKLY(39 MG/M2 TOTAL)
     Route: 051
     Dates: start: 201104, end: 201203
  8. GLIVEC [Suspect]
     Active Substance: IMATINIB MESYLATE
     Dosage: 400 MG, 1X/DAY
     Route: 048
     Dates: start: 201105, end: 20130419
  9. VINCRISTINE SULFATE. [Suspect]
     Active Substance: VINCRISTINE SULFATE
     Dosage: 0.4 MG/M2, WEEKLY (18.4 MG/M2 TOTAL)
     Route: 051
     Dates: start: 201104, end: 201203
  10. ARACYTINE [Suspect]
     Active Substance: CYTARABINE
     Dosage: 263 MG/M2, WEEKLY (12617 MG/M2 TOTAL)
     Route: 051
     Dates: start: 201104, end: 201203
  11. ENDOXAN /00021101/ [Suspect]
     Active Substance: CYCLOPHOSPHAMIDE
     Dosage: 117 MG/M2, WEEKLY (5026 MG/M2 TOTAL)
     Dates: start: 201104, end: 201203
  12. ONCASPAR [Suspect]
     Active Substance: PEGASPARGASE
     Dosage: 279 IU/M2/WEEK (5015 IU/M2 TOTAL)
     Route: 051
     Dates: start: 201104, end: 201203
  13. ETOPOSIDE. [Suspect]
     Active Substance: ETOPOSIDE
     Dosage: 497 MG/M2, WEEKLY (497 MG/M2 TOTAL)
     Dates: start: 201104, end: 201203

REACTIONS (2)
  - Obliterative bronchiolitis [Not Recovered/Not Resolved]
  - Weight increased [Unknown]

NARRATIVE: CASE EVENT DATE: 201311
